FAERS Safety Report 21425012 (Version 1)
Quarter: 2022Q4

REPORT INFORMATION
  Report Type: Spontaneous
  Country: US (occurrence: US)
  Receive Date: 20221008
  Receipt Date: 20221008
  Transmission Date: 20230113
  Serious: No
  Sender: FDA-Public Use
  Company Number: US-CADILA HEALTHCARE LIMITED-US-ZYDUS-075644

PATIENT

DRUGS (2)
  1. AZELASTINE HYDROCHLORIDE [Suspect]
     Active Substance: AZELASTINE HYDROCHLORIDE
     Indication: Dizziness
     Dosage: 137 MICROGRAM, BID
     Route: 045
     Dates: start: 20220301, end: 20220302
  2. AZELASTINE HYDROCHLORIDE [Suspect]
     Active Substance: AZELASTINE HYDROCHLORIDE
     Indication: Product use in unapproved indication

REACTIONS (4)
  - Drug ineffective for unapproved indication [Recovered/Resolved]
  - Nasal congestion [Recovering/Resolving]
  - Product use in unapproved indication [Recovered/Resolved]
  - Dizziness [Recovering/Resolving]

NARRATIVE: CASE EVENT DATE: 20220301
